FAERS Safety Report 9336673 (Version 1)
Quarter: 2013Q2

REPORT INFORMATION
  Report Type: Report from Study
  Country: IE (occurrence: IE)
  Receive Date: 20130607
  Receipt Date: 20130607
  Transmission Date: 20140414
  Serious: Yes (Death)
  Sender: FDA-Public Use
  Company Number: PHHY2013IE041304

PATIENT
  Age: 60 Year
  Sex: Male

DRUGS (3)
  1. AFINITOR [Suspect]
     Indication: RENAL CANCER
     Dates: start: 20130413
  2. ANTIBIOTICS [Concomitant]
     Indication: LOWER RESPIRATORY TRACT INFECTION
     Dates: start: 20130408, end: 20130415
  3. STEROIDS NOS [Concomitant]
     Indication: LOWER RESPIRATORY TRACT INFECTION
     Dates: start: 20130408, end: 20130415

REACTIONS (4)
  - Pleural effusion [Fatal]
  - Metastases to lung [Fatal]
  - Oedema peripheral [Unknown]
  - Dyspnoea [Unknown]
